FAERS Safety Report 5551661-5 (Version None)
Quarter: 2007Q4

REPORT INFORMATION
  Report Type: 
  Country: None (occurrence: None)
  Receive Date: 20071129
  Receipt Date: 20070402
  Transmission Date: 20080405
  Serious: Yes (Other)
  Sender: FDA-Public Use
  Company Number: US200606002889

PATIENT
  Age: 55 Year
  Sex: Female
  Weight: 79.4 kg

DRUGS (5)
  1. ZYPREXA [Suspect]
     Dosage: 30 MG, 5 MG, 15 MG, 20 MG
     Dates: start: 19970918, end: 19990101
  2. ABILIFY [Concomitant]
  3. HALDOL            (HALOPERIDOL DECANOATE) [Concomitant]
  4. DEPAKOTE [Concomitant]
  5. MEDROXYPROGESTERONE [Concomitant]

REACTIONS (5)
  - BLOOD CHOLESTEROL INCREASED [None]
  - DIABETES MELLITUS [None]
  - DIABETIC KETOACIDOSIS [None]
  - EMOTIONAL DISTRESS [None]
  - OVERDOSE [None]
